FAERS Safety Report 12405265 (Version 1)
Quarter: 2016Q2

REPORT INFORMATION
  Report Type: Spontaneous
  Country: US (occurrence: None)
  Receive Date: 20160525
  Receipt Date: 20160525
  Transmission Date: 20160815
  Serious: No
  Sender: FDA-Public Use
  Company Number: None

PATIENT
  Sex: Male

DRUGS (4)
  1. JANUVIA [Suspect]
     Active Substance: SITAGLIPTIN PHOSPHATE
  2. HUMALOG [Suspect]
     Active Substance: INSULIN LISPRO
  3. METFORMIN [Suspect]
     Active Substance: METFORMIN HYDROCHLORIDE
  4. ACTOS [Suspect]
     Active Substance: PIOGLITAZONE HYDROCHLORIDE

REACTIONS (4)
  - Frustration tolerance decreased [None]
  - Drug ineffective [None]
  - Blood glucose fluctuation [None]
  - Therapy change [None]
